FAERS Safety Report 4522123-9 (Version None)
Quarter: 2004Q4

REPORT INFORMATION
  Report Type: 
  Country: None (occurrence: None)
  Receive Date: 20041206
  Receipt Date: 20041122
  Transmission Date: 20050328
  Serious: Yes (Life-Threatening, Hospitalization)
  Sender: FDA-Public Use
  Company Number: 2004097141

PATIENT
  Age: 68 Year
  Sex: Male
  Weight: 46.6 kg

DRUGS (8)
  1. STREPTOMYCIN SULFATE [Suspect]
     Indication: ILL-DEFINED DISORDER
     Dosage: 0.5 GRAM 3 IN 1 WK, INTRAMUSCULAR
     Route: 030
     Dates: start: 20040812, end: 20040819
  2. ISONIAZID [Suspect]
     Indication: PULMONARY TUBERCULOSIS
     Dosage: 200 MG (1 D), ORAL
     Route: 048
     Dates: start: 20040513, end: 20040829
  3. LEVOFLOXACIN [Suspect]
     Indication: PULMONARY TUBERCULOSIS
     Dosage: 200 MG (1 D), ORAL
     Route: 048
     Dates: start: 20040724, end: 20040819
  4. RIFAMPICIN [Suspect]
     Indication: PULMONARY TUBERCULOSIS
     Dosage: 300 MG (1 D),  ORAL
     Route: 048
     Dates: start: 20040513, end: 20040724
  5. ETHAMBUTOL (ETHAMBUTOL) [Suspect]
     Indication: PULMONARY TUBERCULOSIS
     Dosage: 500 MG (1 D), ORAL
     Route: 048
     Dates: start: 20040513, end: 20040729
  6. PYRAZINAMIDE [Suspect]
     Indication: PULMONARY TUBERCULOSIS
     Dosage: 1 GRAM (1 D), ORAL
     Route: 048
     Dates: start: 20040513, end: 20040704
  7. ISONIAZID [Concomitant]
  8. CEFCAPENE PIVOXIL HYDROCHLORIDE (CEFCAPENE PIVOXIL HYDROCHLORIDE) [Concomitant]

REACTIONS (4)
  - FACE OEDEMA [None]
  - HAEMODIALYSIS [None]
  - RASH GENERALISED [None]
  - RENAL FAILURE ACUTE [None]
